FAERS Safety Report 4588496-6 (Version None)
Quarter: 2005Q1

REPORT INFORMATION
  Report Type: 
  Country: None (occurrence: None)
  Receive Date: 20050216
  Receipt Date: 20050131
  Transmission Date: 20050727
  Serious: Yes (Hospitalization, Other)
  Sender: FDA-Public Use
  Company Number: USA050189491

PATIENT
  Age: 54 Year
  Sex: Female

DRUGS (16)
  1. FORTEO [Suspect]
     Indication: OSTEOPOROSIS
     Dates: start: 20031201
  2. VALIUM [Concomitant]
  3. DICLOFENAC SODIUM W/MISOPROSTOL [Concomitant]
  4. PREVACID [Concomitant]
  5. LEXAPRO [Concomitant]
  6. K-DUR 10 [Concomitant]
  7. CARAFATE [Concomitant]
  8. TOPROL-XL [Concomitant]
  9. VALSARTAN [Concomitant]
  10. PREDNISONE [Concomitant]
  11. ACETYLSALICYLIC ACID [Concomitant]
  12. VITAMIN C [Concomitant]
  13. VITAMIN D [Concomitant]
  14. CALCIUM CARBONATE [Concomitant]
  15. PLAVIX [Concomitant]
  16. ARAVA [Concomitant]

REACTIONS (8)
  - BLOOD PRESSURE INCREASED [None]
  - CONVULSION [None]
  - FEELING ABNORMAL [None]
  - INJECTION SITE HAEMORRHAGE [None]
  - PARAESTHESIA [None]
  - PERIPHERAL COLDNESS [None]
  - PHARMACEUTICAL PRODUCT COMPLAINT [None]
  - SENSORY LOSS [None]
